FAERS Safety Report 4755620-1 (Version None)
Quarter: 2005Q3

REPORT INFORMATION
  Report Type: 
  Country: None (occurrence: None)
  Receive Date: 20050830
  Receipt Date: 20050603
  Transmission Date: 20060218
  Serious: Yes (Hospitalization, Other)
  Sender: FDA-Public Use
  Company Number: US-BRISTOL-MYERS SQUIBB COMPANY-12993077

PATIENT
  Age: 20 Year
  Sex: Male
  Weight: 141 kg

DRUGS (2)
  1. ABILIFY [Suspect]
  2. LEXAPRO [Concomitant]

REACTIONS (2)
  - AGGRESSION [None]
  - CONVULSION [None]
